FAERS Safety Report 24077624 (Version 3)
Quarter: 2024Q3

REPORT INFORMATION
  Report Type: Report from Study
  Country: JP (occurrence: JP)
  Receive Date: 20240711
  Receipt Date: 20240923
  Transmission Date: 20241016
  Serious: Yes (Other)
  Sender: LEO PHARM
  Company Number: JP-LEO Pharma-371723

PATIENT
  Age: 44 Year
  Sex: Male

DRUGS (8)
  1. ADBRY [Suspect]
     Active Substance: TRALOKINUMAB-LDRM
     Indication: Dermatitis atopic
     Dosage: ADMINISTRATION SITE:THIGH?ADMINISTERED BY PHYSICIAN?INJECTION 150MG SYRINGE
     Route: 058
     Dates: start: 20240614
  2. DIFLORASONE DIACETATE [Concomitant]
     Active Substance: DIFLORASONE DIACETATE
     Indication: Dermatitis atopic
     Dosage: APPROPRIATE AMOUNT
     Route: 003
     Dates: start: 20240614
  3. BETAMETHASONE DIPROPIONATE [Concomitant]
     Active Substance: BETAMETHASONE DIPROPIONATE
     Indication: Dermatitis atopic
     Dosage: APPROPRIATE AMOUNT
     Route: 003
     Dates: start: 20240614
  4. BEPOTASTINE BESYLATE [Concomitant]
     Active Substance: BEPOTASTINE BESYLATE
     Indication: Dermatitis atopic
     Route: 048
     Dates: start: 20240614
  5. VIBRAMYCIN [Concomitant]
     Active Substance: DOXYCYCLINE
     Indication: Dermatitis atopic
     Route: 048
     Dates: start: 20240614
  6. CLOBETASOL [Concomitant]
     Active Substance: CLOBETASOL
     Indication: Dermatitis atopic
     Dosage: APPROPRIATE AMOUNT
     Route: 003
     Dates: start: 20240614
  7. LOCOID [Concomitant]
     Active Substance: HYDROCORTISONE BUTYRATE
     Indication: Dermatitis atopic
     Dosage: APPROPRIATE AMOUNT
     Route: 003
     Dates: start: 20240614
  8. PROPETO Ointment (White Vaseline) [Concomitant]
     Indication: Dermatitis atopic
     Dosage: APPROPRIATE AMOUNT
     Route: 003
     Dates: start: 20240614

REACTIONS (1)
  - Loss of consciousness [Recovered/Resolved]

NARRATIVE: CASE EVENT DATE: 20240614
